FAERS Safety Report 6922832-8 (Version None)
Quarter: 2010Q3

REPORT INFORMATION
  Report Type: 
  Country: None (occurrence: None)
  Receive Date: 20100813
  Receipt Date: 20100802
  Transmission Date: 20110219
  Serious: Yes (Other)
  Sender: FDA-Public Use
  Company Number: US-PFIZER INC-2010097068

PATIENT
  Sex: Male
  Weight: 136.5 kg

DRUGS (6)
  1. NARDIL [Suspect]
     Indication: DEPRESSION
     Dosage: 30 MG, 2X/DAY
     Route: 048
     Dates: start: 19790101
  2. NARDIL [Suspect]
     Indication: OBSESSIVE-COMPULSIVE DISORDER
  3. KLONOPIN [Suspect]
     Indication: ANXIETY
     Dosage: 1 MG, 3X/DAY
     Route: 048
  4. SEROQUEL [Concomitant]
     Indication: SLEEP DISORDER
     Dosage: 100 MG, 1X/DAY
     Route: 048
     Dates: end: 20100701
  5. ACETYLSALICYLIC ACID [Concomitant]
     Dosage: 325 MG, 1X/DAY
     Route: 048
  6. CENTRUM [Concomitant]
     Dosage: UNK
     Route: 048

REACTIONS (9)
  - CATARACT [None]
  - EJACULATION DISORDER [None]
  - ERECTILE DYSFUNCTION [None]
  - MALE ORGASMIC DISORDER [None]
  - VITREOUS DISORDER [None]
  - VITREOUS FLOATERS [None]
  - WEIGHT DECREASED [None]
  - WEIGHT INCREASED [None]
  - WHITE BLOOD CELL COUNT DECREASED [None]
